FAERS Safety Report 11929246 (Version 1)
Quarter: 2016Q1

REPORT INFORMATION
  Report Type: Spontaneous
  Country: US (occurrence: US)
  Receive Date: 20160120
  Receipt Date: 20160120
  Transmission Date: 20160526
  Serious: Yes (Death, Hospitalization)
  Sender: FDA-Public Use
  Company Number: US-HOSPIRA-3137964

PATIENT
  Age: 53 Year
  Sex: Female

DRUGS (1)
  1. CLINDAMYCIN [Suspect]
     Active Substance: CLINDAMYCIN\CLINDAMYCIN PHOSPHATE
     Indication: SUBCUTANEOUS ABSCESS

REACTIONS (2)
  - Multiple organ dysfunction syndrome [Fatal]
  - Toxic epidermal necrolysis [Fatal]
